FAERS Safety Report 9290035 (Version 1)
Quarter: 2013Q2

REPORT INFORMATION
  Report Type: Spontaneous
  Country: PL (occurrence: None)
  Receive Date: 20130510
  Receipt Date: 20130510
  Transmission Date: 20140414
  Serious: Yes (Hospitalization)
  Sender: FDA-Public Use
  Company Number: 2012AP002447

PATIENT
  Age: 8 Year
  Sex: Male
  Weight: 18 kg

DRUGS (4)
  1. FERRIPROX [Suspect]
     Indication: NEURODEGENERATIVE DISORDER
     Dates: start: 20120710, end: 20120715
  2. RELANIUM / 00017001/ [Concomitant]
  3. MYOLASTAN [Concomitant]
  4. CLONAZEPAM [Concomitant]

REACTIONS (10)
  - Constipation [None]
  - Abdominal distension [None]
  - Pyrexia [None]
  - Stomatitis [None]
  - Lip blister [None]
  - Abdominal pain [None]
  - Gingivitis [None]
  - Oedema mouth [None]
  - Aspartate aminotransferase increased [None]
  - Leukocytosis [None]
